FAERS Safety Report 13116937 (Version 1)
Quarter: 2017Q1

REPORT INFORMATION
  Report Type: Report from Study
  Country: ID (occurrence: ID)
  Receive Date: 20170116
  Receipt Date: 20170116
  Transmission Date: 20170428
  Serious: Yes (Death, Hospitalization, Other)
  Sender: FDA-Public Use
  Company Number: ID-BAYER-2016-190656

PATIENT
  Age: 46 Year
  Sex: Male

DRUGS (3)
  1. NEXAVAR [Suspect]
     Active Substance: SORAFENIB
     Indication: METASTASES TO LUNG
  2. NEXAVAR [Suspect]
     Active Substance: SORAFENIB
     Indication: RENAL CELL CARCINOMA STAGE IV
     Dosage: 200 MG, QD
     Route: 048
     Dates: start: 20160717, end: 20160730
  3. NEXAVAR [Suspect]
     Active Substance: SORAFENIB
     Indication: METASTASES TO LIVER
     Dosage: 800 MG DAILY DOSE (2X400 MG)
     Route: 048
     Dates: start: 20160731, end: 20161015

REACTIONS (10)
  - Insomnia [Not Recovered/Not Resolved]
  - Abdominal distension [Not Recovered/Not Resolved]
  - Pyrexia [Recovering/Resolving]
  - Altered state of consciousness [None]
  - Death [Fatal]
  - Abdominal pain [Not Recovered/Not Resolved]
  - Nausea [Not Recovered/Not Resolved]
  - Chills [Not Recovered/Not Resolved]
  - Weight decreased [Not Recovered/Not Resolved]
  - Muscle spasms [Not Recovered/Not Resolved]

NARRATIVE: CASE EVENT DATE: 2016
